FAERS Safety Report 8169486-3 (Version None)
Quarter: 2012Q1

REPORT INFORMATION
  Report Type: 
  Country: None (occurrence: None)
  Receive Date: 20120222
  Receipt Date: 20120213
  Transmission Date: 20120608
  Serious: Yes (Other)
  Sender: FDA-Public Use
  Company Number: 2012TP000007

PATIENT
  Age: 56 Year
  Sex: Female
  Weight: 92.5338 kg

DRUGS (13)
  1. AMBIEN CR [Concomitant]
  2. PERCOCET [Concomitant]
  3. NORVASC [Concomitant]
  4. AMLODIPINE [Concomitant]
  5. ACETAMINOPHEN AND HYDROCODONE BITARTRATE [Concomitant]
  6. LOSARTAN POTASSIUM AND HYDROCHLOROTHIAZIDE [Concomitant]
  7. METOPROLOL SUCCINATE [Concomitant]
  8. LIDODERM (5 PCT) [Suspect]
     Indication: PAIN IN EXTREMITY
     Dosage: 1 PATCH;1X;TOP
     Route: 061
     Dates: start: 20101022, end: 20101022
  9. CYMBALTA [Concomitant]
  10. BENICAR HCT [Concomitant]
  11. KLONOPIN [Concomitant]
  12. CLINDAMYCIN [Concomitant]
  13. TOPROL-XL [Concomitant]

REACTIONS (6)
  - APPLICATION SITE INFECTION [None]
  - SKIN ULCER [None]
  - BURNING SENSATION [None]
  - BURNS SECOND DEGREE [None]
  - PAIN [None]
  - DISCOMFORT [None]
